FAERS Safety Report 8284451-3 (Version None)
Quarter: 2012Q2

REPORT INFORMATION
  Report Type: 
  Country: None (occurrence: None)
  Receive Date: 20120413
  Receipt Date: 20111101
  Transmission Date: 20120825
  Serious: No
  Sender: FDA-Public Use
  Company Number: US-ASTRAZENECA-2011SE66304

PATIENT
  Age: 69 Year
  Sex: Female
  Weight: 64.9 kg

DRUGS (11)
  1. TEMAZEPAM [Concomitant]
  2. XANAX [Concomitant]
  3. NEXIUM [Suspect]
     Route: 048
  4. CALCIUM CARBONATE [Concomitant]
  5. FLOVENT [Concomitant]
     Route: 055
  6. VASOTEC [Concomitant]
  7. PROAIR HFA [Concomitant]
     Dosage: TWO PUFFS QID
  8. FLONASE [Concomitant]
     Dosage: TWO SPRAY QD
  9. VICODIN [Concomitant]
  10. BUSPAR [Concomitant]
  11. SEROQUEL XR [Suspect]
     Route: 048

REACTIONS (13)
  - CHEST DISCOMFORT [None]
  - HYPOACUSIS [None]
  - BIPOLAR I DISORDER [None]
  - HYPERTENSION [None]
  - FATIGUE [None]
  - CHRONIC OBSTRUCTIVE PULMONARY DISEASE [None]
  - STRESS URINARY INCONTINENCE [None]
  - SCHIZOPHRENIA [None]
  - MUSCLE SPASMS [None]
  - OSTEOPOROSIS [None]
  - ANXIETY DISORDER [None]
  - ARTERIOSCLEROSIS [None]
  - MAJOR DEPRESSION [None]
